FAERS Safety Report 24277163 (Version 1)
Quarter: 2024Q3

REPORT INFORMATION
  Report Type: Spontaneous
  Country: CA (occurrence: CA)
  Receive Date: 20240903
  Receipt Date: 20240903
  Transmission Date: 20241017
  Serious: Yes (Other)
  Sender: PFIZER
  Company Number: CA-PFIZER INC-202400245697

PATIENT
  Age: 24 Year
  Sex: Male

DRUGS (1)
  1. ABRILADA [Suspect]
     Active Substance: ADALIMUMAB-AFZB
     Indication: Crohn^s disease
     Dosage: 160 MG, (1DF), ON WEEK 0, 80 MG ON WEEK 2, 40 MG EVERY 2 WEEKS FROM WEEK 4
     Route: 058
     Dates: start: 20240424

REACTIONS (3)
  - Abscess [Unknown]
  - Condition aggravated [Unknown]
  - Discomfort [Unknown]

NARRATIVE: CASE EVENT DATE: 20240101
